FAERS Safety Report 7410815-3 (Version None)
Quarter: 2011Q2

REPORT INFORMATION
  Report Type: 
  Country: None (occurrence: None)
  Receive Date: 20110413
  Receipt Date: 20110408
  Transmission Date: 20111010
  Serious: No
  Sender: FDA-Public Use
  Company Number: US-PFIZER INC-2011078081

PATIENT
  Sex: Female
  Weight: 50 kg

DRUGS (3)
  1. MULTI-VITAMINS [Concomitant]
  2. ARTHROTEC [Suspect]
     Indication: RHEUMATOID ARTHRITIS
     Dosage: 200/ 0.75  TWICE DAILY
     Route: 048
     Dates: end: 20110301
  3. PROCARDIA [Concomitant]
     Dosage: UNK

REACTIONS (3)
  - DEHYDRATION [None]
  - BLOOD SODIUM DECREASED [None]
  - ORAL PAIN [None]
